FAERS Safety Report 21146710 (Version 3)
Quarter: 2022Q3

REPORT INFORMATION
  Report Type: Report from Study
  Country: CN (occurrence: CN)
  Receive Date: 20220729
  Receipt Date: 20220913
  Transmission Date: 20221027
  Serious: Yes (Hospitalization)
  Sender: FDA-Public Use
  Company Number: CN-KARYOPHARM-2022KPT000810

PATIENT
  Age: 67 Year
  Sex: Female
  Weight: 49 kg

DRUGS (8)
  1. SELINEXOR [Suspect]
     Active Substance: SELINEXOR
     Indication: Plasma cell myeloma
     Dosage: 100 MG, D1, 8, 15, 22, 29
     Route: 048
     Dates: start: 20210904, end: 20210910
  2. SELINEXOR [Suspect]
     Active Substance: SELINEXOR
     Dosage: 80 MG, D1, 8, 15, 22, 29
     Route: 048
     Dates: start: 20211002, end: 20220107
  3. SELINEXOR [Suspect]
     Active Substance: SELINEXOR
     Dosage: 60 MG, D1, 8, 15, 22, 29
     Route: 048
     Dates: start: 20220122, end: 20220616
  4. DEXAMETHASONE [Suspect]
     Active Substance: DEXAMETHASONE
     Indication: Plasma cell myeloma
     Dosage: 20 MG, D1, 8, 15, 22, 29
     Route: 048
     Dates: start: 20210904, end: 20220318
  5. DEXAMETHASONE [Suspect]
     Active Substance: DEXAMETHASONE
     Dosage: 20 MG, D1, 8, 15, 22, 29
     Route: 048
     Dates: start: 20220512, end: 20220616
  6. BORTEZOMIB [Suspect]
     Active Substance: BORTEZOMIB
     Indication: Plasma cell myeloma
     Dosage: 1.3 MG/M2, D1, 8, 15, 22
     Route: 042
     Dates: start: 20210904, end: 20211203
  7. BORTEZOMIB [Suspect]
     Active Substance: BORTEZOMIB
     Dosage: 1.0 MG/M2, D1, 8, 15, 22
     Route: 042
     Dates: start: 20211217, end: 20220317
  8. BORTEZOMIB [Suspect]
     Active Substance: BORTEZOMIB
     Dosage: 1.0 MG/M2, D1, 8, 15, 22
     Route: 042
     Dates: start: 20220512, end: 20220630

REACTIONS (2)
  - Cataract [Recovering/Resolving]
  - Cataract [Recovering/Resolving]

NARRATIVE: CASE EVENT DATE: 20220628
